FAERS Safety Report 7792730-9 (Version None)
Quarter: 2011Q4

REPORT INFORMATION
  Report Type: 
  Country: None (occurrence: None)
  Receive Date: 20111003
  Receipt Date: 20110921
  Transmission Date: 20120403
  Serious: No
  Sender: FDA-Public Use
  Company Number: US-B.I. PHARMACEUTICALS,INC./RIDGEFIELD-2011-BP-20230BP

PATIENT
  Sex: Male

DRUGS (11)
  1. PRADAXA [Suspect]
     Indication: ATRIAL FIBRILLATION
     Dosage: 300 MG
     Route: 048
     Dates: start: 20110812, end: 20110813
  2. LASIX [Concomitant]
     Indication: HYPERTENSION
     Dosage: 40 MG
  3. DOXAZOSIN MESYLATE [Concomitant]
     Dosage: 8 MG
  4. CLONIDINE [Concomitant]
     Indication: HYPERTENSION
     Dosage: 0.9 MG
  5. AVAPRO [Concomitant]
     Indication: HYPERTENSION
     Dosage: 300 MG
  6. NIFEDIPINE [Concomitant]
     Indication: HYPERTENSION
     Dosage: 90 MG
  7. LOPRESSOR [Concomitant]
     Indication: HYPERTENSION
     Dosage: 50 MG
  8. LISINOPRIL [Concomitant]
     Indication: HYPERTENSION
     Dosage: 80 MG
  9. LEVOTHYROXINE [Concomitant]
     Indication: HYPOTHYROIDISM
     Dosage: 50 MCG
  10. SPIRONOLACTONE [Concomitant]
     Indication: HYPERTENSION
     Dosage: 25 MG
  11. DIGOXIN [Concomitant]
     Indication: ATRIAL FIBRILLATION
     Dosage: 0.125 MG

REACTIONS (4)
  - ABDOMINAL PAIN UPPER [None]
  - DYSPEPSIA [None]
  - FLATULENCE [None]
  - INSOMNIA [None]
